FAERS Safety Report 26037318 (Version 1)
Quarter: 2025Q4

REPORT INFORMATION
  Report Type: Report from Study
  Country: US (occurrence: US)
  Receive Date: 20251112
  Receipt Date: 20251112
  Transmission Date: 20260118
  Serious: Yes (Other)
  Sender: ALEXION PHARMACEUTICALS
  Company Number: 202510NAM030181US

PATIENT
  Sex: Female

DRUGS (1)
  1. SAPHNELO [Suspect]
     Active Substance: ANIFROLUMAB-FNIA
     Indication: Systemic lupus erythematosus
     Dosage: 300 MILLIGRAM, Q4W
     Dates: start: 20251016

REACTIONS (8)
  - Arthralgia [Unknown]
  - Joint swelling [Unknown]
  - Dizziness [Unknown]
  - Angle closure glaucoma [Unknown]
  - Urinary tract infection [Unknown]
  - Fungal infection [Unknown]
  - Pollakiuria [Unknown]
  - Limb injury [Unknown]
